FAERS Safety Report 5451935-2 (Version None)
Quarter: 2007Q3

REPORT INFORMATION
  Report Type: 
  Country: None (occurrence: None)
  Receive Date: 20070912
  Receipt Date: 20070903
  Transmission Date: 20080115
  Serious: Yes (Other)
  Sender: FDA-Public Use
  Company Number: 2007SP017622

PATIENT
  Age: 6 Year
  Sex: Male

DRUGS (1)
  1. DIPRODERM (BETAMETHASONE DIPROPRIATE (TOPICAL)) (BETAMETHASONE DIPROPI [Suspect]
     Indication: PHIMOSIS
     Dosage: 1 DF;QD;

REACTIONS (1)
  - TYPE 1 DIABETES MELLITUS [None]
